FAERS Safety Report 7576489-6 (Version None)
Quarter: 2011Q2

REPORT INFORMATION
  Report Type: 
  Country: None (occurrence: None)
  Receive Date: 20110628
  Receipt Date: 20110608
  Transmission Date: 20111010
  Serious: Yes (Other)
  Sender: FDA-Public Use
  Company Number: US-BAYER-201030085NA

PATIENT
  Age: 83 Year
  Sex: Male

DRUGS (5)
  1. TRASYLOL [Suspect]
     Indication: CARDIAC OPERATION
     Route: 042
     Dates: start: 20060808, end: 20060808
  2. LISINOPRIL [Concomitant]
     Indication: HYPERTENSION
  3. LASIX [Concomitant]
  4. SIMVASTATIN [Concomitant]
     Indication: BLOOD CHOLESTEROL INCREASED
  5. LEVOTHYROXINE SODIUM [Concomitant]

REACTIONS (14)
  - ANXIETY [None]
  - EMOTIONAL DISTRESS [None]
  - STRESS [None]
  - RENAL FAILURE [None]
  - DISABILITY [None]
  - RENAL INJURY [None]
  - ANHEDONIA [None]
  - EMOTIONAL DISORDER [None]
  - MULTI-ORGAN FAILURE [None]
  - PAIN [None]
  - DEPRESSION [None]
  - RENAL IMPAIRMENT [None]
  - FEAR [None]
  - INJURY [None]
